FAERS Safety Report 4592304-7 (Version None)
Quarter: 2005Q1

REPORT INFORMATION
  Report Type: 
  Country: None (occurrence: None)
  Receive Date: 20050228
  Receipt Date: 20041124
  Transmission Date: 20050727
  Serious: No
  Sender: FDA-Public Use
  Company Number: US-BRISTOL-MYERS SQUIBB COMPANY-12778403

PATIENT
  Age: 54 Year
  Sex: Female

DRUGS (3)
  1. ABILIFY [Suspect]
     Indication: SCHIZOAFFECTIVE DISORDER
     Route: 048
     Dates: start: 20040101
  2. FLUOXETINE [Concomitant]
  3. BUPROPION [Concomitant]

REACTIONS (1)
  - TARDIVE DYSKINESIA [None]
